FAERS Safety Report 9354886 (Version 1)
Quarter: 2013Q2

REPORT INFORMATION
  Report Type: Spontaneous
  Country: US (occurrence: US)
  Receive Date: 20130619
  Receipt Date: 20130619
  Transmission Date: 20140414
  Serious: Yes (Hospitalization)
  Sender: FDA-Public Use
  Company Number: US-BIOGENIDEC-2013BI054446

PATIENT
  Age: 32 Year
  Sex: Female

DRUGS (4)
  1. TECFIDERA [Suspect]
     Indication: MULTIPLE SCLEROSIS
  2. AVONEX [Concomitant]
     Indication: MULTIPLE SCLEROSIS
     Route: 030
     Dates: start: 20110301, end: 20130502
  3. AVONEX [Concomitant]
     Indication: MULTIPLE SCLEROSIS
     Route: 030
     Dates: start: 20080621, end: 20110207
  4. AVONEX [Concomitant]
     Indication: MULTIPLE SCLEROSIS
     Route: 030
     Dates: start: 20030517, end: 20060201

REACTIONS (10)
  - Gastric disorder [Recovered/Resolved]
  - White blood cell count decreased [Recovered/Resolved]
  - Urticaria [Recovered/Resolved]
  - Vomiting [Recovered/Resolved]
  - Diarrhoea [Recovered/Resolved]
  - Gastroenteritis viral [Recovered/Resolved]
  - Aphagia [Recovered/Resolved]
  - Dysphagia [Recovered/Resolved]
  - Blood iron decreased [Unknown]
  - Dehydration [Recovered/Resolved]
